FAERS Safety Report 5260868-6 (Version None)
Quarter: 2007Q1

REPORT INFORMATION
  Report Type: 
  Country: None (occurrence: None)
  Receive Date: 20070309
  Receipt Date: 20070226
  Transmission Date: 20070707
  Serious: Yes (Hospitalization)
  Sender: FDA-Public Use
  Company Number: FR-ROCHE-479393

PATIENT
  Sex: Female
  Weight: 2.8 kg

DRUGS (2)
  1. RIVOTRIL [Suspect]
     Indication: EPILEPSY
     Dates: start: 20030615, end: 20061126
  2. METHADONE HYDROCHLORIDE [Suspect]
     Indication: DRUG USE FOR UNKNOWN INDICATION
     Dosage: DRUG REPORTED AS METHADONE CHLORHYDRATE AP-HP.
     Dates: end: 20061126

REACTIONS (5)
  - AGITATION [None]
  - DRUG WITHDRAWAL SYNDROME [None]
  - HYPERTONIA [None]
  - SCREAMING [None]
  - TREMOR NEONATAL [None]
